FAERS Safety Report 18941025 (Version 1)
Quarter: 2021Q1

REPORT INFORMATION
  Report Type: Spontaneous
  Country: US (occurrence: US)
  Receive Date: 20210225
  Receipt Date: 20210225
  Transmission Date: 20210420
  Serious: No
  Sender: FDA-Public Use
  Company Number: US-ASTRAZENECA-2021A080331

PATIENT
  Sex: Male

DRUGS (2)
  1. BREZTRI AEROSPHERE [Suspect]
     Active Substance: BUDESONIDE\FORMOTEROL\GLYCOPYRRONIUM
     Indication: LUNG DISORDER
     Dosage: 160/9/4.8MCG, TWO PUFFS TWICE A DAY
     Route: 055
     Dates: start: 202012, end: 20210217
  2. BREZTRI AEROSPHERE [Suspect]
     Active Substance: BUDESONIDE\FORMOTEROL\GLYCOPYRRONIUM
     Indication: CHRONIC OBSTRUCTIVE PULMONARY DISEASE
     Dosage: 160/9/4.8MCG, TWO PUFFS TWICE A DAY
     Route: 055
     Dates: start: 202012, end: 20210217

REACTIONS (3)
  - Dyspnoea [Unknown]
  - Drug intolerance [Unknown]
  - Dry mouth [Unknown]
